FAERS Safety Report 8849491 (Version 1)
Quarter: 2012Q4

REPORT INFORMATION
  Report Type: Spontaneous
  Country: US (occurrence: None)
  Receive Date: 20121017
  Receipt Date: 20121017
  Transmission Date: 20130627
  Serious: Yes (Other)
  Sender: FDA-Public Use
  Company Number: 2012AP003365

PATIENT
  Age: 22 Year
  Sex: Female

DRUGS (2)
  1. LITHIUM  CARBONATE CAPSULES [Suspect]
     Indication: BIPOLAR DISORDER
  2. CIPROFLOXACIN [Concomitant]

REACTIONS (3)
  - Renal tubular disorder [None]
  - Drug level increased [None]
  - Urine analysis abnormal [None]
